FAERS Safety Report 18072244 (Version 2)
Quarter: 2020Q3

REPORT INFORMATION
  Report Type: Spontaneous
  Country: US (occurrence: US)
  Receive Date: 20200727
  Receipt Date: 20200730
  Transmission Date: 20201103
  Serious: Yes (Hospitalization, Other)
  Sender: FDA-Public Use
  Company Number: US-PFIZER INC-2020282328

PATIENT
  Age: 23 Year
  Sex: Female

DRUGS (8)
  1. IBUPROFEN. [Suspect]
     Active Substance: IBUPROFEN
     Dosage: UNK (MORE SPORADIC BASIS FOR 3?6 MONTHS)
  2. PREDNISONE. [Concomitant]
     Active Substance: PREDNISONE
     Dosage: 30 MG, 1X/DAY (ON AWAKENING)
  3. PREDNISONE. [Concomitant]
     Active Substance: PREDNISONE
     Dosage: 10 MG, 1X/DAY (WITH DINNER)
  4. IBUPROFEN. [Suspect]
     Active Substance: IBUPROFEN
     Indication: ARTHRALGIA
     Dosage: 400 MG, 4X/DAY (OVER 2 YEARS)
  5. PREDNISONE. [Concomitant]
     Active Substance: PREDNISONE
     Indication: SYSTEMIC LUPUS ERYTHEMATOSUS
     Dosage: UNK, ALTERNATE DAY (TAPERING DOSES)
  6. PREDNISONE. [Concomitant]
     Active Substance: PREDNISONE
     Dosage: UNK (TAPERING DOSES)
  7. FERROUS SULFATE. [Concomitant]
     Active Substance: FERROUS SULFATE
     Indication: IRON DEFICIENCY ANAEMIA
     Dosage: UNK
  8. PREDNISONE. [Concomitant]
     Active Substance: PREDNISONE
     Dosage: 30 MG, DAILY

REACTIONS (3)
  - Drug hypersensitivity [Recovering/Resolving]
  - Abortion spontaneous [Unknown]
  - Meningitis [Recovering/Resolving]
